FAERS Safety Report 8402747-9 (Version None)
Quarter: 2012Q2

REPORT INFORMATION
  Report Type: 
  Country: None (occurrence: None)
  Receive Date: 20120323
  Receipt Date: 20111121
  Transmission Date: 20120825
  Serious: Yes (Other)
  Sender: FDA-Public Use
  Company Number: 163-21880-10102832

PATIENT
  Age: 66 Year
  Sex: Male
  Weight: 83.9 kg

DRUGS (7)
  1. NORVASC [Concomitant]
  2. DIFLUCAN [Concomitant]
  3. REVLIMID [Suspect]
     Indication: HODGKIN'S DISEASE
     Dosage: 10 MG, DAILY X 21 DAYS, PO
     Route: 048
     Dates: start: 20100801, end: 20100101
  4. MAGNESIUM (MAGNESIUM) [Concomitant]
  5. ACYCLOVIR [Concomitant]
  6. NEURONTIN [Concomitant]
  7. LANTUS [Concomitant]

REACTIONS (3)
  - PLATELET COUNT DECREASED [None]
  - RED BLOOD CELL COUNT DECREASED [None]
  - WHITE BLOOD CELL COUNT DECREASED [None]
